FAERS Safety Report 17016916 (Version 34)
Quarter: 2023Q2

REPORT INFORMATION
  Report Type: Report from Study
  Country: GB (occurrence: GB)
  Receive Date: 20191111
  Receipt Date: 20230623
  Transmission Date: 20230722
  Serious: Yes (Hospitalization, Other)
  Sender: FDA-Public Use
  Company Number: GB-ROCHE-1671632

PATIENT
  Age: 45 Year
  Sex: Female
  Weight: 80 kg

DRUGS (63)
  1. EXEMESTANE [Suspect]
     Active Substance: EXEMESTANE
     Indication: Breast cancer metastatic
     Dosage: 25 MG, 1X/DAY
     Route: 048
     Dates: start: 20150518
  2. EXEMESTANE [Suspect]
     Active Substance: EXEMESTANE
     Dosage: 600 MG, ONCE IN 3 WEEK
     Dates: start: 20180723
  3. DOCETAXEL [Suspect]
     Active Substance: DOCETAXEL
     Indication: Breast cancer metastatic
     Dosage: 600 MG ONCE IN 3 WEEK
     Route: 042
     Dates: start: 20150217, end: 20160308
  4. DOCETAXEL [Suspect]
     Active Substance: DOCETAXEL
     Dosage: 120 MG, ONCE 3 WEEK
     Route: 042
     Dates: start: 20150804, end: 20150804
  5. DOCETAXEL [Suspect]
     Active Substance: DOCETAXEL
     Dosage: 120 MG
     Route: 042
     Dates: start: 20150808, end: 20151117
  6. DOCETAXEL [Suspect]
     Active Substance: DOCETAXEL
     Dosage: 120 MG ONCE 3 WEEK
     Route: 042
     Dates: start: 20150814, end: 20151117
  7. DOCETAXEL [Suspect]
     Active Substance: DOCETAXEL
     Dosage: 120 MG ONCE 3 WEEK
     Route: 042
     Dates: start: 20150814, end: 20151117
  8. DOCETAXEL [Suspect]
     Active Substance: DOCETAXEL
     Dosage: 600 MG, ONCE 3 WEEK
     Route: 042
     Dates: start: 20151217, end: 20160308
  9. DOCETAXEL [Suspect]
     Active Substance: DOCETAXEL
     Dosage: 140 MG, EVERY 3 WEEKS
     Route: 042
     Dates: start: 20150106, end: 20150424
  10. PERTUZUMAB [Suspect]
     Active Substance: PERTUZUMAB
     Indication: Breast cancer metastatic
     Dosage: 840 MG ONCE A TOTAL
     Route: 042
     Dates: start: 20150804, end: 20150804
  11. PERTUZUMAB [Suspect]
     Active Substance: PERTUZUMAB
     Dosage: 420 MG ONCE IN 3 WEEK
     Route: 042
     Dates: start: 20150825, end: 20151117
  12. PERTUZUMAB [Suspect]
     Active Substance: PERTUZUMAB
     Dosage: 420 MG ONCE 3 WEEK
     Route: 042
     Dates: start: 20151217, end: 20160308
  13. PERTUZUMAB [Suspect]
     Active Substance: PERTUZUMAB
     Dosage: 840 MG ONCE TOTAL
     Route: 042
     Dates: start: 20160623, end: 20160623
  14. PERTUZUMAB [Suspect]
     Active Substance: PERTUZUMAB
     Dosage: 420 MG, 1X/DAY
     Route: 042
     Dates: start: 20160715
  15. PERTUZUMAB [Suspect]
     Active Substance: PERTUZUMAB
     Dosage: 840 MG, 1X/DAY
     Route: 042
     Dates: start: 20150102, end: 20150102
  16. PERTUZUMAB [Suspect]
     Active Substance: PERTUZUMAB
     Dosage: 420 MG, EVERY 3 WEEKS
     Route: 042
     Dates: start: 20150130, end: 20161024
  17. TRASTUZUMAB [Suspect]
     Active Substance: TRASTUZUMAB
     Indication: Breast cancer metastatic
     Dosage: 483 MG, 1X/DAY
     Dates: start: 20150803, end: 20150803
  18. TRASTUZUMAB [Suspect]
     Active Substance: TRASTUZUMAB
     Dosage: 600 MG ONCE 3 WEEK
     Dates: start: 20150825, end: 20151117
  19. TRASTUZUMAB [Suspect]
     Active Substance: TRASTUZUMAB
     Dosage: 600 MG, 1X/DAY
     Dates: start: 20151217, end: 20160308
  20. TRASTUZUMAB [Suspect]
     Active Substance: TRASTUZUMAB
     Dosage: 600 MG ONCE 3 WEEK
     Dates: start: 20160308, end: 20160308
  21. TRASTUZUMAB [Suspect]
     Active Substance: TRASTUZUMAB
     Dosage: 1800 MG ONCE WEEK
     Dates: start: 20160623
  22. TRASTUZUMAB [Suspect]
     Active Substance: TRASTUZUMAB
     Dosage: 600 MG ONCE IN 3 WEEK
     Dates: start: 20160723
  23. TRASTUZUMAB [Suspect]
     Active Substance: TRASTUZUMAB
     Dosage: 600 MG ONCE IN 3 WEEK
     Dates: start: 20160623
  24. TRASTUZUMAB [Suspect]
     Active Substance: TRASTUZUMAB
     Dosage: 600 MG ONCE IN 3 WEEK
     Dates: start: 20160623
  25. TRASTUZUMAB [Suspect]
     Active Substance: TRASTUZUMAB
     Dosage: 483 MG, 1X/DAY
     Dates: start: 20150803, end: 20150803
  26. TRASTUZUMAB [Suspect]
     Active Substance: TRASTUZUMAB
     Dosage: 600 MG, 1X/DAY
     Dates: start: 20151217, end: 20160308
  27. TRASTUZUMAB [Suspect]
     Active Substance: TRASTUZUMAB
     Dosage: 558 MG, 1X/DAY
     Route: 042
     Dates: start: 20150105, end: 20150105
  28. TRASTUZUMAB [Suspect]
     Active Substance: TRASTUZUMAB
     Dosage: 441 MG, EVERY 3 WEEKS
     Route: 042
     Dates: start: 20150130, end: 20161003
  29. ANASTROZOLE [Suspect]
     Active Substance: ANASTROZOLE
     Indication: Product used for unknown indication
     Dosage: 1 MG, 1X/DAY
     Route: 048
     Dates: start: 20150616
  30. HYALURONIDASE (HUMAN RECOMBINANT) [Concomitant]
     Active Substance: HYALURONIDASE (HUMAN RECOMBINANT)
     Dosage: 600 MG, PERSISTENT 1 WEEKS
     Dates: start: 20150825, end: 20151117
  31. HYALURONIDASE (HUMAN RECOMBINANT) [Concomitant]
     Active Substance: HYALURONIDASE (HUMAN RECOMBINANT)
     Dosage: 600 MG ONCE IN 3 WEEK
     Dates: start: 20160308
  32. HYALURONIDASE (HUMAN RECOMBINANT) [Concomitant]
     Active Substance: HYALURONIDASE (HUMAN RECOMBINANT)
     Dosage: 600 MG ONCE 2 WEEKS
     Dates: start: 20160623
  33. IBANDRONIC ACID [Concomitant]
     Active Substance: IBANDRONIC ACID
     Indication: Metastases to bone
     Dosage: 50 MG, DAILY
     Route: 048
     Dates: start: 20150518
  34. RAMIPRIL [Concomitant]
     Active Substance: RAMIPRIL
     Indication: Ejection fraction decreased
     Dosage: 10 MG
     Route: 048
     Dates: start: 201603
  35. BENZYDAMINE [Concomitant]
     Active Substance: BENZYDAMINE
     Indication: Mucosal inflammation
     Dosage: 15 MG, 4X/DAY
     Route: 048
     Dates: start: 20150308, end: 20150817
  36. BENZYDAMINE [Concomitant]
     Active Substance: BENZYDAMINE
     Indication: Gingival swelling
     Dosage: 15 MG, 1X/DAY
     Route: 065
     Dates: start: 201508
  37. BENZYDAMINE [Concomitant]
     Active Substance: BENZYDAMINE
     Indication: Metastases to bone
     Dosage: 60 ML, 1X/DAY
     Route: 048
     Dates: start: 20150803, end: 20150817
  38. BISOPROLOL [Concomitant]
     Active Substance: BISOPROLOL
     Indication: Ejection fraction decreased
     Dosage: 1.25 MG, 1X/DAY
     Route: 048
     Dates: start: 20180717
  39. CIPROFLOXACIN [Concomitant]
     Active Substance: CIPROFLOXACIN
     Indication: Vascular device infection
     Dosage: 1000 MG, 1X/DAY
     Route: 048
     Dates: start: 20151210, end: 20151215
  40. CIPROFLOXACIN [Concomitant]
     Active Substance: CIPROFLOXACIN
     Dosage: 1000 MG, 1X/DAY
     Route: 048
     Dates: start: 20160908
  41. AMOXICILLIN\CLAVULANATE POTASSIUM [Concomitant]
     Active Substance: AMOXICILLIN\CLAVULANATE POTASSIUM
     Indication: Vascular device infection
     Dosage: 120 MG
     Route: 058
     Dates: start: 20160127
  42. AMOXICILLIN\CLAVULANATE POTASSIUM [Concomitant]
     Active Substance: AMOXICILLIN\CLAVULANATE POTASSIUM
     Dosage: 1875 MG, 1X/DAY
     Route: 048
     Dates: start: 20160915
  43. XGEVA [Concomitant]
     Active Substance: DENOSUMAB
     Dosage: 24 MILLIGRAM EVERY 3 DAYS (CUMULATIVE DOSE: 16.0 MG)
     Route: 058
     Dates: start: 20150803
  44. XGEVA [Concomitant]
     Active Substance: DENOSUMAB
     Dosage: 3 DF EVERY 3 DAYS
     Route: 058
     Dates: start: 20150803
  45. XGEVA [Concomitant]
     Active Substance: DENOSUMAB
     Dosage: 120 MG, MONTHLY
     Route: 058
     Dates: start: 20160127, end: 201802
  46. XGEVA [Concomitant]
     Active Substance: DENOSUMAB
     Dosage: 1 EVERY 3 WEEKS; 3 DAYS 2 WEEKS
     Route: 065
     Dates: start: 20150803
  47. DEXAMETHASONE [Concomitant]
     Active Substance: DEXAMETHASONE
     Dosage: 8 MG, UNK (FOR THREE DAYS EVERY 3 WEEKS)
     Route: 048
     Dates: start: 20150803
  48. GENTAMICIN [Concomitant]
     Active Substance: GENTAMICIN
     Indication: Device related infection
     Dosage: UNK
     Route: 065
     Dates: start: 20151130, end: 20151209
  49. IRON [Concomitant]
     Active Substance: IRON
     Indication: Serum ferritin decreased
     Dosage: UNK
     Route: 048
     Dates: start: 20170927
  50. IRON [Concomitant]
     Active Substance: IRON
     Dosage: 3 G, 1X/DAY
     Route: 065
     Dates: start: 20160918
  51. MEROPENEM [Concomitant]
     Active Substance: MEROPENEM
     Dosage: 3 G, 1X/DAY
     Route: 042
     Dates: start: 20160918
  52. ACETAMINOPHEN [Concomitant]
     Active Substance: ACETAMINOPHEN
     Indication: Device related infection
     Dosage: 2000 MG, 1X/DAY
     Route: 048
     Dates: start: 20141211, end: 20141224
  53. ACETAMINOPHEN [Concomitant]
     Active Substance: ACETAMINOPHEN
     Dosage: 4 G, 1X/DAY
     Route: 048
     Dates: start: 20160916
  54. PIPERACILLIN SODIUM\TAZOBACTAM SODIUM [Concomitant]
     Active Substance: PIPERACILLIN SODIUM\TAZOBACTAM SODIUM
     Dosage: UNK
     Route: 065
     Dates: start: 20151130, end: 20151209
  55. PIPERACILLIN SODIUM\TAZOBACTAM SODIUM [Concomitant]
     Active Substance: PIPERACILLIN SODIUM\TAZOBACTAM SODIUM
     Dosage: 600 MG, EVERY 3 WEEKS
     Route: 058
     Dates: start: 20160723
  56. CALCIUM [Concomitant]
     Active Substance: CALCIUM
     Indication: Nutritional supplementation
  57. BENZYDAMINE HYDROCHLORIDE [Concomitant]
     Active Substance: BENZYDAMINE HYDROCHLORIDE
     Indication: Gingival swelling
     Dosage: 15 MG, DAILY
     Route: 065
     Dates: start: 20150315, end: 20150817
  58. HYALURONIDASE (HUMAN RECOMBINANT)\TRASTUZUMAB [Concomitant]
     Active Substance: HYALURONIDASE (HUMAN RECOMBINANT)\TRASTUZUMAB
     Indication: Breast cancer metastatic
     Dosage: 600 MG ONCE 3 WEEK
     Route: 058
     Dates: start: 20150825
  59. HYALURONIDASE (HUMAN RECOMBINANT)\TRASTUZUMAB [Concomitant]
     Active Substance: HYALURONIDASE (HUMAN RECOMBINANT)\TRASTUZUMAB
     Dosage: 600 MG ONCE 3 WEEK
     Route: 058
     Dates: start: 20160623
  60. HYALURONIDASE (HUMAN RECOMBINANT)\TRASTUZUMAB [Concomitant]
     Active Substance: HYALURONIDASE (HUMAN RECOMBINANT)\TRASTUZUMAB
     Dosage: UNK
     Route: 058
  61. HYALURONATE SODIUM [Concomitant]
     Active Substance: HYALURONATE SODIUM
     Dosage: 600 MG ONCE IN 3 WEEK
     Route: 058
     Dates: start: 20150825
  62. HYALURONATE SODIUM [Concomitant]
     Active Substance: HYALURONATE SODIUM
     Dosage: UNK UNK, 1X/DAY
     Dates: start: 20160308
  63. HYALURONATE SODIUM [Concomitant]
     Active Substance: HYALURONATE SODIUM
     Dosage: 600 MG ONCE IN 3 WEEK
     Dates: start: 20160523

REACTIONS (20)
  - Rash [Recovered/Resolved]
  - Hot flush [Unknown]
  - Epistaxis [Recovered/Resolved]
  - Osteonecrosis of jaw [Not Recovered/Not Resolved]
  - Gastrooesophageal reflux disease [Recovered/Resolved]
  - Ejection fraction decreased [Recovered/Resolved]
  - Ejection fraction decreased [Recovered/Resolved]
  - Vascular device infection [Recovered/Resolved]
  - Fatigue [Recovered/Resolved]
  - Fatigue [Not Recovered/Not Resolved]
  - Vascular device infection [Recovered/Resolved]
  - Fatigue [Recovered/Resolved]
  - Influenza like illness [Recovered/Resolved]
  - Lymphoedema [Recovered/Resolved]
  - Gingival swelling [Recovered/Resolved]
  - Ejection fraction decreased [Recovered/Resolved]
  - Mucosal inflammation [Recovered/Resolved]
  - Diarrhoea [Recovered/Resolved]
  - Anaemia [Recovered/Resolved]
  - Alopecia [Recovered/Resolved]

NARRATIVE: CASE EVENT DATE: 20150801
